FAERS Safety Report 8782632 (Version 1)
Quarter: 2012Q4

REPORT INFORMATION
  Report Type: 
  Country: US (occurrence: US)
  Receive Date: 20120913
  Receipt Date: 20120913
  Transmission Date: 20130627
  Serious: No
  Sender: FDA-Public Use
  Company Number: US-TEVA-358682USA

PATIENT
  Age: 45 Year
  Sex: Female
  Weight: 63.56 kg

DRUGS (2)
  1. COPAXONE [Suspect]
     Indication: MULTIPLE SCLEROSIS
     Route: 058
     Dates: start: 2007
  2. ZOLPIDEM [Concomitant]
     Indication: INSOMNIA
     Dosage: Unknown
     Route: 048

REACTIONS (5)
  - Immediate post-injection reaction [Recovered/Resolved]
  - Flushing [Not Recovered/Not Resolved]
  - Palpitations [Recovered/Resolved]
  - Dyspnoea [Recovered/Resolved]
  - Pelvic pain [Recovered/Resolved]
